FAERS Safety Report 8285365-5 (Version None)
Quarter: 2012Q2

REPORT INFORMATION
  Report Type: 
  Country: None (occurrence: None)
  Receive Date: 20120413
  Receipt Date: 20120125
  Transmission Date: 20120825
  Serious: No
  Sender: FDA-Public Use
  Company Number: US-ASTRAZENECA-2012SE03826

PATIENT
  Age: 44 Year
  Sex: Male

DRUGS (3)
  1. NEXIUM [Suspect]
     Route: 048
  2. RANITIDINE [Concomitant]
  3. ZANTAC [Concomitant]

REACTIONS (5)
  - MALAISE [None]
  - DRUG DOSE OMISSION [None]
  - REGURGITATION [None]
  - FEAR OF EATING [None]
  - CHOKING [None]
